FAERS Safety Report 24382958 (Version 1)
Quarter: 2024Q4

REPORT INFORMATION
  Report Type: Spontaneous
  Country: JP (occurrence: JP)
  Receive Date: 20241001
  Receipt Date: 20241001
  Transmission Date: 20250115
  Serious: Yes (Hospitalization)
  Sender: ROCHE
  Company Number: JP-ROCHE-10000032022

PATIENT
  Age: 91 Year
  Sex: Female
  Weight: 42.5 kg

DRUGS (17)
  1. RITUXIMAB [Suspect]
     Active Substance: RITUXIMAB
     Indication: Anti-neutrophil cytoplasmic antibody positive vasculitis
     Dosage: 480 MG (375 MG/M^2) WAS ADMINISTERED AS THE FIRST DOSE
     Route: 050
     Dates: start: 20230209
  2. RITUXIMAB [Suspect]
     Active Substance: RITUXIMAB
     Dosage: 480 MG (375 MG/M^2) WAS ADMINISTERED AS THE FIRST DOSE
     Route: 050
     Dates: start: 20230309
  3. METHYLPREDNISOLONE [Concomitant]
     Active Substance: METHYLPREDNISOLONE
     Dosage: FOR THREE DAYS
     Route: 042
  4. PREDNISOLONE [Concomitant]
     Active Substance: PREDNISOLONE
     Route: 048
  5. FUROSEMIDE [Concomitant]
     Active Substance: FUROSEMIDE
  6. TRICHLORMETHIAZIDE [Concomitant]
     Active Substance: TRICHLORMETHIAZIDE
  7. TOLVAPTAN [Concomitant]
     Active Substance: TOLVAPTAN
  8. ROXADUSTAT [Concomitant]
     Active Substance: ROXADUSTAT
  9. LANSOPRAZOLE [Concomitant]
     Active Substance: LANSOPRAZOLE
  10. LINAGLIPTIN [Concomitant]
     Active Substance: LINAGLIPTIN
  11. REPAGLINIDE [Concomitant]
     Active Substance: REPAGLINIDE
  12. FEBUXOSTAT [Concomitant]
     Active Substance: FEBUXOSTAT
  13. SULFAMETHOXAZOLE [Concomitant]
     Active Substance: SULFAMETHOXAZOLE
  14. ALENDRONIC ACID [Concomitant]
     Active Substance: ALENDRONIC ACID
  15. SODIUM ZIRCONIUM CYCLOSILICATE [Concomitant]
     Active Substance: SODIUM ZIRCONIUM CYCLOSILICATE
  16. CLONAZEPAM [Concomitant]
     Active Substance: CLONAZEPAM
  17. TRAZODONE HYDROCHLORIDE [Concomitant]
     Active Substance: TRAZODONE HYDROCHLORIDE

REACTIONS (2)
  - Neutropenia [Recovered/Resolved]
  - Pneumonia [Recovered/Resolved]

NARRATIVE: CASE EVENT DATE: 20230502
